FAERS Safety Report 23637914 (Version 1)
Quarter: 2024Q1

REPORT INFORMATION
  Report Type: Spontaneous
  Country: GB (occurrence: GB)
  Receive Date: 20240315
  Receipt Date: 20240315
  Transmission Date: 20240410
  Serious: Yes (Other)
  Sender: FDA-Public Use
  Company Number: None

PATIENT
  Age: 22 Year
  Sex: Female
  Weight: 53 kg

DRUGS (1)
  1. CITALOPRAM [Suspect]
     Active Substance: CITALOPRAM HYDROBROMIDE
     Indication: Major depression
     Dosage: 10 MILLIGRAM (10MG)
     Route: 065
     Dates: start: 20240210

REACTIONS (4)
  - Bradycardia [Recovering/Resolving]
  - Mydriasis [Recovering/Resolving]
  - Sedation [Recovering/Resolving]
  - Yawning [Recovered/Resolved]

NARRATIVE: CASE EVENT DATE: 20240211
